FAERS Safety Report 7294626-8 (Version None)
Quarter: 2011Q1

REPORT INFORMATION
  Report Type: 
  Country: None (occurrence: None)
  Receive Date: 20110202
  Receipt Date: 20110121
  Transmission Date: 20110831
  Serious: Yes (Disabling)
  Sender: FDA-Public Use
  Company Number: 2011P1003870

PATIENT
  Age: 73 Year
  Sex: Male
  Weight: 74.8435 kg

DRUGS (7)
  1. CLOBETASOL PROPIONATE OINTMENT USP 0.05% (NO PREF. NAME) [Suspect]
     Indication: ERYTHRODERMIC PSORIASIS
     Dosage: 1 APPLICATION; BID TO PALMS OF HANDS AND SOLES OF FEET; TOP
     Route: 061
     Dates: start: 20100801, end: 20110104
  2. TRIAMCINOLONE OINTMENT [Concomitant]
  3. FOSAMAX [Concomitant]
  4. SALICYIC SHAMPOO [Concomitant]
  5. HYDROCORTISONE [Concomitant]
  6. PREV MEDS [Concomitant]
  7. PROSCAR [Concomitant]

REACTIONS (6)
  - HYPERKERATOSIS [None]
  - PAIN [None]
  - MUSCULOSKELETAL STIFFNESS [None]
  - GAIT DISTURBANCE [None]
  - SKIN TIGHTNESS [None]
  - LACERATION [None]
